FAERS Safety Report 5899060-0 (Version None)
Quarter: 2008Q3

REPORT INFORMATION
  Report Type: 
  Country: None (occurrence: None)
  Receive Date: 20080925
  Receipt Date: 20080912
  Transmission Date: 20090109
  Serious: Yes (Other)
  Sender: FDA-Public Use
  Company Number: AU-ELI_LILLY_AND_COMPANY-AU200809003010

PATIENT
  Age: 12 Year
  Sex: Male

DRUGS (2)
  1. STRATTERA [Suspect]
     Indication: ATTENTION DEFICIT/HYPERACTIVITY DISORDER
     Dosage: 0.7 - 1.2 MG/KG, DAILY (1/D)
     Route: 065
  2. STRATTERA [Suspect]
     Dosage: 0.3 MG/KG, 2/D
     Route: 065

REACTIONS (1)
  - URINARY RETENTION [None]
